FAERS Safety Report 8473511-X (Version None)
Quarter: 2012Q2

REPORT INFORMATION
  Report Type: 
  Country: None (occurrence: None)
  Receive Date: 20120622
  Receipt Date: 20120622
  Transmission Date: 20120825
  Serious: Yes (Other)
  Sender: FDA-Public Use
  Company Number: None

PATIENT
  Age: 31 Year
  Sex: Female
  Weight: 58.514 kg

DRUGS (1)
  1. VANCOMYCIN [Suspect]
     Dates: start: 20120620, end: 20120620

REACTIONS (4)
  - DIZZINESS [None]
  - PRURITUS [None]
  - ERYTHEMA [None]
  - URTICARIA [None]
